FAERS Safety Report 8539406-8 (Version None)
Quarter: 2012Q3

REPORT INFORMATION
  Report Type: 
  Country: None (occurrence: None)
  Receive Date: 20120726
  Receipt Date: 20120716
  Transmission Date: 20120928
  Serious: Yes (Disabling)
  Sender: FDA-Public Use
  Company Number: US-009507513-1207USA004875

PATIENT

DRUGS (3)
  1. FOSAMAX [Suspect]
     Dosage: ORAL
     Route: 048
     Dates: start: 19970101, end: 20060101
  2. FOSAMAX [Suspect]
     Dosage: ORAL
     Route: 048
     Dates: start: 20100101, end: 20101005
  3. BONIVA [Suspect]
     Dosage: ORAL
     Dates: start: 20060101, end: 20100101

REACTIONS (1)
  - FEMUR FRACTURE [None]
